FAERS Safety Report 24571552 (Version 1)
Quarter: 2024Q4

REPORT INFORMATION
  Report Type: Spontaneous
  Country: JP (occurrence: JP)
  Receive Date: 20241101
  Receipt Date: 20241101
  Transmission Date: 20250114
  Serious: Yes (Hospitalization, Other)
  Sender: MYLAN
  Company Number: JP-MYE-2024M1098796AA

PATIENT
  Age: 10 Year
  Sex: Male

DRUGS (6)
  1. CAFFEINE AND SODIUM BENZOATE [Suspect]
     Active Substance: CAFFEINE\SODIUM BENZOATE
     Indication: Methylmalonic acidaemia
     Route: 065
  2. TACROLIMUS [Suspect]
     Active Substance: TACROLIMUS
     Indication: Immunosuppressant drug therapy
     Route: 065
  3. MYCOPHENOLATE MOFETIL [Suspect]
     Active Substance: MYCOPHENOLATE MOFETIL
     Indication: Immunosuppressant drug therapy
     Route: 065
  4. BASILIXIMAB [Suspect]
     Active Substance: BASILIXIMAB
     Indication: Immunosuppressant drug therapy
     Route: 065
  5. EVEROLIMUS [Suspect]
     Active Substance: EVEROLIMUS
     Indication: Immunosuppressant drug therapy
     Route: 065
  6. Immunoglobulin [Concomitant]
     Indication: Multisystem inflammatory syndrome in adults
     Route: 042

REACTIONS (3)
  - Hepatocellular carcinoma [Recovering/Resolving]
  - Nephropathy toxic [Recovering/Resolving]
  - Drug ineffective [Unknown]
